FAERS Safety Report 9251291 (Version 1)
Quarter: 2013Q1

REPORT INFORMATION
  Report Type: Spontaneous
  Country: US (occurrence: None)
  Receive Date: 20130305
  Receipt Date: 20130305
  Transmission Date: 20140127
  Serious: Yes (Hospitalization, Disabling)
  Sender: FDA-Public Use
  Company Number: 163-21880-12081760

PATIENT
  Age: 60 Year
  Sex: Male

DRUGS (4)
  1. REVLIMID [Suspect]
     Indication: PLASMA CELL MYELOMA
     Dosage: 21 IN 21 D
     Route: 048
     Dates: start: 20120808, end: 20120811
  2. POTASSIUM [Suspect]
  3. LOPRESSOR [Suspect]
  4. NORVASC [Suspect]

REACTIONS (3)
  - Angioedema [None]
  - Renal failure [None]
  - Light chain analysis increased [None]
